FAERS Safety Report 8166053-2 (Version None)
Quarter: 2012Q1

REPORT INFORMATION
  Report Type: 
  Country: None (occurrence: None)
  Receive Date: 20120227
  Receipt Date: 20120106
  Transmission Date: 20120608
  Serious: No
  Sender: FDA-Public Use
  Company Number: US-MYLANLABS-2011S1004172

PATIENT
  Sex: Female
  Weight: 72.58 kg

DRUGS (4)
  1. CLARAVIS [Suspect]
     Indication: ACNE CYSTIC
     Route: 048
  2. ORAL CONTRACEPTIVE NOS [Concomitant]
  3. AMNESTEEM [Suspect]
     Indication: ACNE CYSTIC
     Route: 048
  4. AMNESTEEM [Suspect]
     Route: 048
     Dates: start: 20101001, end: 20110201

REACTIONS (3)
  - ARTHRALGIA [None]
  - MYALGIA [None]
  - GASTROINTESTINAL DISORDER [None]
